FAERS Safety Report 6755883-7 (Version None)
Quarter: 2010Q2

REPORT INFORMATION
  Report Type: 
  Country: None (occurrence: None)
  Receive Date: 20100603
  Receipt Date: 20100603
  Transmission Date: 20101027
  Serious: Yes (Other)
  Sender: FDA-Public Use
  Company Number: None

PATIENT
  Age: 32 Year
  Sex: Male
  Weight: 108.8633 kg

DRUGS (1)
  1. ACCUTANE [Suspect]
     Indication: ACOUSTIC NEUROMA
     Dates: start: 19920101, end: 19930901

REACTIONS (1)
  - ACOUSTIC NEUROMA [None]
